FAERS Safety Report 7511416-9 (Version None)
Quarter: 2011Q2

REPORT INFORMATION
  Report Type: 
  Country: None (occurrence: None)
  Receive Date: 20110531
  Receipt Date: 20110517
  Transmission Date: 20111010
  Serious: Yes (Other)
  Sender: FDA-Public Use
  Company Number: PHHY2011US42522

PATIENT
  Sex: Male

DRUGS (4)
  1. CARVDELOL [Concomitant]
  2. ASPIRIN [Concomitant]
     Dosage: 81 MG, UNK
  3. DIOVAN HCT [Suspect]
     Dosage: 160 MG VALS AND 12.5 MG HCT, BID
  4. DIOVAN HCT [Suspect]
     Dosage: 80 MG VALS AND 6.25 MG HCT, BID

REACTIONS (3)
  - CARDIAC DISORDER [None]
  - THROMBOSIS [None]
  - BLOOD PRESSURE ABNORMAL [None]
